FAERS Safety Report 5303602-3 (Version None)
Quarter: 2007Q2

REPORT INFORMATION
  Report Type: 
  Country: None (occurrence: None)
  Receive Date: 20070420
  Receipt Date: 20070409
  Transmission Date: 20071010
  Serious: Yes (Other)
  Sender: FDA-Public Use
  Company Number: US-PFIZER INC-2007025746

PATIENT
  Sex: Female

DRUGS (1)
  1. CHANTIX [Suspect]

REACTIONS (4)
  - COGNITIVE DISORDER [None]
  - EUPHORIC MOOD [None]
  - ILLUSION [None]
  - NERVOUS SYSTEM DISORDER [None]
